FAERS Safety Report 17293902 (Version 5)
Quarter: 2020Q2

REPORT INFORMATION
  Report Type: Spontaneous
  Country: US (occurrence: US)
  Receive Date: 20200121
  Receipt Date: 20200512
  Transmission Date: 20200713
  Serious: Yes (Hospitalization, Other)
  Sender: FDA-Public Use
  Company Number: US-SA-2020SA013922

PATIENT
  Age: 68 Year
  Sex: Female

DRUGS (2)
  1. KEVZARA [Suspect]
     Active Substance: SARILUMAB
     Indication: RHEUMATOID ARTHRITIS
     Dosage: 200 MG, QOW
     Route: 058
     Dates: start: 201912
  2. XARELTO [Concomitant]
     Active Substance: RIVAROXABAN

REACTIONS (4)
  - Hip arthroplasty [Unknown]
  - Cystitis [Recovering/Resolving]
  - Sepsis [Unknown]
  - Wound [Recovering/Resolving]

NARRATIVE: CASE EVENT DATE: 202002
